FAERS Safety Report 8431804-6 (Version None)
Quarter: 2012Q2

REPORT INFORMATION
  Report Type: 
  Country: None (occurrence: None)
  Receive Date: 20120323
  Receipt Date: 20110808
  Transmission Date: 20120825
  Serious: Yes (Other)
  Sender: FDA-Public Use
  Company Number: 163-21880-11063778

PATIENT
  Age: 77 Year
  Sex: Male

DRUGS (1)
  1. REVLIMID [Suspect]
     Indication: MULTIPLE MYELOMA
     Dosage: 25 MG, DAILY FOR 21/28 DAYS, PO
     Route: 048
     Dates: start: 20110422, end: 20110607

REACTIONS (3)
  - FACIAL PAIN [None]
  - RASH GENERALISED [None]
  - GINGIVAL PAIN [None]
